FAERS Safety Report 23202012 (Version 1)
Quarter: 2023Q4

REPORT INFORMATION
  Report Type: Spontaneous
  Country: CN (occurrence: CN)
  Receive Date: 20231120
  Receipt Date: 20231120
  Transmission Date: 20240109
  Serious: Yes (Other)
  Sender: FDA-Public Use
  Company Number: CN-BAUSCHBL-2023BNL011637

PATIENT
  Age: 5 Month
  Sex: Male
  Weight: 9 kg

DRUGS (2)
  1. TIMOLOL MALEATE [Suspect]
     Active Substance: TIMOLOL MALEATE
     Indication: Haemangioma
     Dosage: FOR EXTERNAL APPLICATION
     Route: 065
     Dates: start: 20231008, end: 20231031
  2. TIMOLOL MALEATE [Suspect]
     Active Substance: TIMOLOL MALEATE
     Indication: Product use in unapproved indication

REACTIONS (4)
  - Haemangioma of skin [Recovering/Resolving]
  - Condition aggravated [Recovering/Resolving]
  - Skin erosion [Recovering/Resolving]
  - Product use in unapproved indication [Unknown]

NARRATIVE: CASE EVENT DATE: 20231008
